FAERS Safety Report 6908196-4 (Version None)
Quarter: 2010Q3

REPORT INFORMATION
  Report Type: 
  Country: None (occurrence: None)
  Receive Date: 20100805
  Receipt Date: 20100722
  Transmission Date: 20110219
  Serious: Yes (Other)
  Sender: FDA-Public Use
  Company Number: DE-BRISTOL-MYERS SQUIBB COMPANY-15223092

PATIENT
  Age: 41 Year
  Sex: Male

DRUGS (4)
  1. ATAZANAVIR [Suspect]
     Indication: HIV INFECTION
     Route: 048
     Dates: start: 20100119
  2. TRUVADA [Suspect]
     Indication: HIV INFECTION
     Route: 048
     Dates: start: 20071115
  3. RITONAVIR [Suspect]
     Indication: HIV INFECTION
     Route: 048
     Dates: start: 20100119
  4. AARANE [Concomitant]
     Indication: ASTHMA
     Dates: start: 20020710

REACTIONS (4)
  - OSTEOARTHRITIS [None]
  - OSTEONECROSIS [None]
  - ROTATOR CUFF SYNDROME [None]
  - TENDONITIS [None]
